FAERS Safety Report 4891804-X (Version None)
Quarter: 2006Q1

REPORT INFORMATION
  Report Type: 
  Country: None (occurrence: None)
  Receive Date: 20060123
  Receipt Date: 20060111
  Transmission Date: 20060701
  Serious: Yes (Hospitalization, Other)
  Sender: FDA-Public Use
  Company Number: DE200601001683

PATIENT
  Sex: Female

DRUGS (2)
  1. ZYPREXA [Suspect]
     Indication: SCHIZOPHRENIA, PARANOID TYPE
     Dosage: 20 MG, ORAL; 10 MG, ORAL
     Route: 048
     Dates: start: 20031013, end: 20051201
  2. ZYPREXA [Suspect]
     Indication: SCHIZOPHRENIA, PARANOID TYPE
     Dosage: 20 MG, ORAL; 10 MG, ORAL
     Route: 048
     Dates: start: 20051201

REACTIONS (2)
  - ABSCESS [None]
  - DIABETES MELLITUS INSULIN-DEPENDENT [None]
